FAERS Safety Report 22293113 (Version 1)
Quarter: 2023Q2

REPORT INFORMATION
  Report Type: Report from Study
  Country: BR (occurrence: BR)
  Receive Date: 20230508
  Receipt Date: 20230508
  Transmission Date: 20230722
  Serious: Yes (Hospitalization, Other)
  Sender: FDA-Public Use
  Company Number: BR-ABBVIE-4751561

PATIENT
  Sex: Female
  Weight: 63 kg

DRUGS (11)
  1. RINVOQ [Suspect]
     Active Substance: UPADACITINIB
     Indication: Dermatitis atopic
     Dosage: 1 TABLET
     Route: 048
     Dates: start: 20230409
  2. RINVOQ [Suspect]
     Active Substance: UPADACITINIB
     Indication: Dermatitis atopic
     Dosage: 1 TABLET
     Route: 048
     Dates: end: 20230404
  3. Vannair (formoterol fumarate + budesonide) [Concomitant]
     Indication: Asthma
     Route: 055
     Dates: start: 20230408
  4. Vannair (formoterol fumarate + budesonide) [Concomitant]
     Indication: Asthma
     Route: 055
  5. Cimegripe (paracetamol + chlorpheniramine maleate + phenylephrine) [Concomitant]
     Indication: Product used for unknown indication
  6. Ciclo 21 (levonorgestrel + ethinyl estradiol) [Concomitant]
     Indication: Contraception
     Route: 048
  7. Ciclo 21 (levonorgestrel + ethinyl estradiol) [Concomitant]
     Indication: Contraception
     Route: 048
  8. SPIRIVA [Concomitant]
     Active Substance: TIOTROPIUM BROMIDE MONOHYDRATE
     Indication: Asthma
     Route: 055
     Dates: start: 20230408, end: 20230503
  9. NASONEX [Concomitant]
     Active Substance: MOMETASONE FUROATE
     Indication: Asthma
     Route: 045
     Dates: start: 20230408
  10. Axetilcefuroxima (Cefuroxime axetil) [Concomitant]
     Indication: Asthma
     Route: 048
     Dates: start: 20230408, end: 20230412
  11. Axetilcefuroxima (Cefuroxime axetil) [Concomitant]
     Indication: Asthma
     Route: 048
     Dates: start: 20230408, end: 20230412

REACTIONS (2)
  - Asthmatic crisis [Recovering/Resolving]
  - Influenza [Unknown]
